FAERS Safety Report 23678943 (Version 2)
Quarter: 2024Q2

REPORT INFORMATION
  Report Type: Report from Study
  Country: US (occurrence: US)
  Receive Date: 20240327
  Receipt Date: 20240524
  Transmission Date: 20240715
  Serious: Yes (Death, Other)
  Sender: FDA-Public Use
  Company Number: US-JNJFOC-20240364345

PATIENT
  Age: 62 Year
  Sex: Male

DRUGS (1)
  1. CILTACABTAGENE AUTOLEUCEL [Suspect]
     Active Substance: CILTACABTAGENE AUTOLEUCEL
     Indication: Plasma cell myeloma
     Dosage: 0.7 X10^6 CAR POSITIVE T CELLS
     Route: 065
     Dates: start: 2023, end: 2023

REACTIONS (2)
  - Arrhythmia [Fatal]
  - Cytokine release syndrome [Unknown]
